FAERS Safety Report 14310174 (Version 4)
Quarter: 2018Q1

REPORT INFORMATION
  Report Type: Report from Study
  Country: FR (occurrence: FR)
  Receive Date: 20171220
  Receipt Date: 20180110
  Transmission Date: 20180509
  Serious: Yes (Hospitalization)
  Sender: FDA-Public Use
  Company Number: FR-TEVA-2017-FR-836218

PATIENT
  Age: 40 Year
  Sex: Female
  Weight: 60 kg

DRUGS (7)
  1. VENLAFAXINE [Interacting]
     Active Substance: VENLAFAXINE HYDROCHLORIDE
     Indication: DEPRESSION
     Dosage: 225 MG, QOD
     Route: 048
     Dates: start: 20170815
  2. CABOTEGRAVIR SUSPENSION FOR INJECTION [Interacting]
     Active Substance: CABOTEGRAVIR
     Dosage: 2 ML, CYC
     Route: 030
     Dates: start: 20170928
  3. RILPIVIRINE [Concomitant]
     Active Substance: RILPIVIRINE
     Dosage: 25 MG, UNK
  4. CABOTEGRAVIR SUSPENSION FOR INJECTION [Suspect]
     Active Substance: CABOTEGRAVIR
     Indication: HIV INFECTION
     Dosage: 400 MG, UNK
     Route: 030
     Dates: start: 20170928
  5. CABOTEGRAVIR [Interacting]
     Active Substance: CABOTEGRAVIR
     Indication: HIV INFECTION
     Dosage: 30 MG, UNK
     Route: 048
     Dates: start: 201709, end: 201709
  6. RILPIVIRINE [Concomitant]
     Active Substance: RILPIVIRINE
     Dosage: 600 MG, UNK
     Dates: start: 20170928
  7. PAROXETINE. [Concomitant]
     Active Substance: PAROXETINE

REACTIONS (5)
  - Medication error [Unknown]
  - Depressed mood [Recovered/Resolved]
  - Depression [Recovered/Resolved]
  - Anxiety [Recovered/Resolved]
  - Drug interaction [Unknown]

NARRATIVE: CASE EVENT DATE: 20170928
